FAERS Safety Report 11755237 (Version 1)
Quarter: 2015Q4

REPORT INFORMATION
  Report Type: Spontaneous
  Country: US (occurrence: None)
  Receive Date: 20151118
  Receipt Date: 20151118
  Transmission Date: 20160304
  Serious: No
  Sender: FDA-Public Use
  Company Number: None

PATIENT
  Age: 14 Day
  Sex: Male
  Weight: 61.24 kg

DRUGS (1)
  1. EPIDUO [Suspect]
     Active Substance: ADAPALENE\BENZOYL PEROXIDE
     Indication: ACNE
     Dosage: TWO -THREE NIGHTS TOPICAL ACNE MEDICATION
     Route: 061
     Dates: start: 20151114, end: 20151116

REACTIONS (1)
  - Application site pain [None]

NARRATIVE: CASE EVENT DATE: 20151117
